FAERS Safety Report 10506896 (Version 3)
Quarter: 2014Q4

REPORT INFORMATION
  Report Type: Report from Study
  Country: AU (occurrence: AU)
  Receive Date: 20141009
  Receipt Date: 20141014
  Transmission Date: 20150528
  Serious: Yes (Hospitalization)
  Sender: FDA-Public Use
  Company Number: AU-009507513-1312AUS007600

PATIENT
  Age: 42 Year
  Sex: Female
  Weight: 139.9 kg

DRUGS (22)
  1. FERRO-GRADUMET [Concomitant]
     Active Substance: FERROUS SULFATE\FERROUS SULFATE, DRIED
     Indication: ROUTINE HEALTH MAINTENANCE
     Dosage: 525 MG, QD
     Route: 048
     Dates: start: 201105
  2. LEVLEN [Concomitant]
     Active Substance: ETHINYL ESTRADIOL\LEVONORGESTREL
     Indication: CONTRACEPTION
     Dosage: 1 TABLET, QD
     Route: 048
     Dates: start: 20130925
  3. ENDONE [Concomitant]
     Active Substance: OXYCODONE HYDROCHLORIDE
     Indication: EAR PAIN
     Dosage: 5 MG, PRN
     Route: 048
     Dates: start: 200705
  4. TEMAZEPAM. [Concomitant]
     Active Substance: TEMAZEPAM
     Indication: INSOMNIA
     Dosage: 10 MG, PRN
     Route: 048
     Dates: start: 200708
  5. METOCLOPRAMIDE. [Concomitant]
     Active Substance: METOCLOPRAMIDE
     Indication: PROPHYLAXIS OF NAUSEA AND VOMITING
     Dosage: DAILY 10 MG, PRN
     Route: 048
     Dates: start: 20131018
  6. COAL TAR (+) SALICYLIC ACID [Concomitant]
     Indication: PSORIASIS
     Dosage: 1 APPLICATION, QD
     Route: 061
     Dates: start: 20131206
  7. PEMBROLIZUMAB. [Suspect]
     Active Substance: PEMBROLIZUMAB
     Dosage: 10 MG/KG, Q3W
     Route: 042
     Dates: start: 20140207, end: 20140723
  8. VITAMIN D [Concomitant]
     Active Substance: CHOLECALCIFEROL
     Indication: ROUTINE HEALTH MAINTENANCE
     Dosage: 25 MICROGRAM, QD
     Route: 048
     Dates: start: 201105
  9. DAIVOBET [Concomitant]
     Active Substance: BETAMETHASONE DIPROPIONATE\CALCIPOTRIENE
     Indication: PSORIASIS
     Dosage: 1 APPLICATION, QD
     Route: 061
     Dates: start: 201108
  10. PROMETHAZINE [Concomitant]
     Active Substance: PROMETHAZINE\PROMETHAZINE HYDROCHLORIDE
     Indication: RASH
     Dosage: DAILY 25 MG, PRN
     Route: 048
     Dates: start: 20131114
  11. ASCORBIC ACID. [Concomitant]
     Active Substance: ASCORBIC ACID
     Indication: ROUTINE HEALTH MAINTENANCE
     Dosage: 1000 MG, QD
     Route: 048
     Dates: start: 201108
  12. LORATADINE. [Concomitant]
     Active Substance: LORATADINE
     Indication: RASH
     Dosage: 10 MG, QD
     Route: 048
     Dates: start: 20131114
  13. PEMBROLIZUMAB. [Suspect]
     Active Substance: PEMBROLIZUMAB
     Indication: MALIGNANT MELANOMA
     Dosage: 10 MG/KG, Q2W
     Route: 042
     Dates: start: 20131018, end: 20131114
  14. PEMBROLIZUMAB. [Suspect]
     Active Substance: PEMBROLIZUMAB
     Dosage: 10 MG/KG, Q2W
     Route: 042
     Dates: start: 20131128, end: 20131128
  15. PEMBROLIZUMAB. [Suspect]
     Active Substance: PEMBROLIZUMAB
     Dosage: 10 MG/KG, Q2W
     Route: 042
     Dates: start: 20131212, end: 20131212
  16. PEMBROLIZUMAB. [Suspect]
     Active Substance: PEMBROLIZUMAB
     Dosage: 10 MG/KG, Q3W
     Route: 042
     Dates: start: 20140116, end: 20140116
  17. DIAZEPAM. [Concomitant]
     Active Substance: DIAZEPAM
     Indication: ANXIETY
     Dosage: DAILY 20 MG, PRN
     Route: 048
     Dates: start: 200708
  18. HYDROCORTISONE ACETATE. [Concomitant]
     Active Substance: HYDROCORTISONE ACETATE
     Indication: RASH
     Dosage: 15 G, BID
     Route: 061
     Dates: start: 20131114
  19. AMITRIPTYLINE HYDROCHLORIDE. [Concomitant]
     Active Substance: AMITRIPTYLINE HYDROCHLORIDE
     Indication: EAR PAIN
     Dosage: 100 MG, QD
     Route: 048
     Dates: start: 200705
  20. OMEGA-3 MARINE TRIGLYCERIDES [Concomitant]
     Active Substance: FISH OIL
     Indication: ROUTINE HEALTH MAINTENANCE
     Dosage: 1 TABLET, QD
     Route: 048
     Dates: start: 201108
  21. CETIRIZINE HYDROCHLORIDE. [Concomitant]
     Active Substance: CETIRIZINE HYDROCHLORIDE
     Indication: PSORIASIS
     Dosage: 5 MG, BID
     Route: 050
     Dates: start: 20131206
  22. DIPROSONE OV [Concomitant]
     Indication: PSORIASIS
     Dosage: 1 APPLICATION, BID
     Route: 061
     Dates: start: 20131206

REACTIONS (1)
  - Autoimmune hepatitis [Recovered/Resolved]

NARRATIVE: CASE EVENT DATE: 20131210
